FAERS Safety Report 4928633-4 (Version None)
Quarter: 2006Q1

REPORT INFORMATION
  Report Type: 
  Country: None (occurrence: None)
  Receive Date: 20060227
  Receipt Date: 20060227
  Transmission Date: 20060701
  Serious: Yes (Life-Threatening, Hospitalization)
  Sender: FDA-Public Use
  Company Number: None

PATIENT
  Age: 47 Year
  Sex: Female
  Weight: 56.6996 kg

DRUGS (2)
  1. NAPROXEN [Suspect]
     Indication: INFLAMMATION
     Dosage: TAKE 1 TABLET 2 TIMES PER DAY   2X PER DAY AS  NEEDED  PO
     Route: 048
     Dates: start: 20050602, end: 20051218
  2. NAPROXEN [Suspect]
     Indication: PAIN
     Dosage: TAKE 1 TABLET 2 TIMES PER DAY   2X PER DAY AS  NEEDED  PO
     Route: 048
     Dates: start: 20050602, end: 20051218

REACTIONS (1)
  - HEART RATE INCREASED [None]
